FAERS Safety Report 9993333 (Version 1)
Quarter: 2014Q1

REPORT INFORMATION
  Report Type: Spontaneous
  Country: US (occurrence: US)
  Receive Date: 20140310
  Receipt Date: 20140310
  Transmission Date: 20141002
  Serious: No
  Sender: FDA-Public Use
  Company Number: US-BAUSCH-BL-2013-003873

PATIENT
  Age: 61 Year
  Sex: Male
  Weight: 111.23 kg

DRUGS (5)
  1. DESMOPRESSIN ACETATE NASAL SOLUTION 0.01% [Suspect]
     Indication: POLYURIA
     Dosage: 1 SPRAY IN EACH NOSTRIL; FOUR TIMES DAILY; NASAL
     Route: 045
     Dates: start: 2012, end: 20130619
  2. PREDNISONE [Concomitant]
  3. SYNTHROID [Concomitant]
     Indication: THYROID DISORDER
  4. LISINOPRIL [Concomitant]
     Indication: HYPERTENSION
  5. ANDROGEL [Concomitant]
     Indication: ANDROGEN DEFICIENCY

REACTIONS (5)
  - Headache [Recovered/Resolved]
  - Rhinorrhoea [Recovered/Resolved]
  - Thirst [Recovered/Resolved]
  - Polyuria [Recovered/Resolved]
  - Condition aggravated [Recovered/Resolved]
